FAERS Safety Report 12130351 (Version 1)
Quarter: 2016Q1

REPORT INFORMATION
  Report Type: Spontaneous
  Country: US (occurrence: None)
  Receive Date: 20160229
  Receipt Date: 20160229
  Transmission Date: 20160526
  Serious: Yes (Hospitalization)
  Sender: FDA-Public Use
  Company Number: None

PATIENT
  Age: 60 Year
  Sex: Female
  Weight: 74.84 kg

DRUGS (4)
  1. LOVASTATIN TABS 20MG - GENERIC FOR MEVACORD SANDOZ [Suspect]
     Active Substance: LOVASTATIN
     Indication: BLOOD CHOLESTEROL INCREASED
     Route: 048
     Dates: start: 201507, end: 20151210
  2. CHLORTHALIDONE. [Concomitant]
     Active Substance: CHLORTHALIDONE
  3. PREMARIN [Concomitant]
     Active Substance: ESTROGENS, CONJUGATED
  4. ONE A DAY WOMEN MULTIVITAMINS GUMMIES - FRUIT FLAVOR [Concomitant]

REACTIONS (7)
  - Influenza [None]
  - Fatigue [None]
  - Pain [None]
  - Headache [None]
  - Pyrexia [None]
  - Asthenia [None]
  - Vision blurred [None]

NARRATIVE: CASE EVENT DATE: 20151215
